FAERS Safety Report 10230258 (Version 1)
Quarter: 2014Q2

REPORT INFORMATION
  Report Type: Spontaneous
  Country: MA (occurrence: MA)
  Receive Date: 20140611
  Receipt Date: 20140611
  Transmission Date: 20141212
  Serious: Yes (Hospitalization)
  Sender: FDA-Public Use
  Company Number: MA-SA-2014SA074043

PATIENT
  Age: 24 Year
  Sex: Female

DRUGS (4)
  1. OLANZAPINE [Suspect]
     Indication: PSYCHOTIC DISORDER
     Route: 065
  2. ZOLPIDEM [Suspect]
     Indication: SCHIZOPHRENIA, CATATONIC TYPE
     Route: 065
  3. ZOLPIDEM [Suspect]
     Indication: SCHIZOPHRENIA, CATATONIC TYPE
     Route: 065
  4. DIAZEPAM [Concomitant]

REACTIONS (7)
  - Neuroleptic malignant syndrome [Recovering/Resolving]
  - Musculoskeletal stiffness [Recovering/Resolving]
  - Dysphagia [Recovering/Resolving]
  - Choking [Recovering/Resolving]
  - Body temperature increased [Recovering/Resolving]
  - Blood creatine phosphokinase increased [Recovered/Resolved]
  - Off label use [Unknown]
